FAERS Safety Report 16933680 (Version 1)
Quarter: 2019Q4

REPORT INFORMATION
  Report Type: Spontaneous
  Country: US (occurrence: US)
  Receive Date: 20191018
  Receipt Date: 20191018
  Transmission Date: 20200122
  Serious: No
  Sender: FDA-Public Use
  Company Number: US-TEVA-2019-US-1125207

PATIENT
  Age: 84 Year
  Sex: Female

DRUGS (1)
  1. FLUVASTATIN SODIUM. [Suspect]
     Active Substance: FLUVASTATIN SODIUM
     Route: 065

REACTIONS (5)
  - Nausea [Unknown]
  - Intraocular pressure increased [Unknown]
  - Cystitis [Unknown]
  - Nightmare [Unknown]
  - Headache [Unknown]
